FAERS Safety Report 7475460-2 (Version None)
Quarter: 2011Q2

REPORT INFORMATION
  Report Type: 
  Country: None (occurrence: None)
  Receive Date: 20110512
  Receipt Date: 20110428
  Transmission Date: 20111010
  Serious: Yes (Hospitalization)
  Sender: FDA-Public Use
  Company Number: IR-MYLANLABS-2011S1007945

PATIENT
  Age: 80 Year
  Sex: Male

DRUGS (3)
  1. LOVASTATIN [Suspect]
     Route: 065
  2. DILTIAZEM [Interacting]
     Route: 065
  3. ATENOLOL [Concomitant]
     Route: 065

REACTIONS (7)
  - DRUG INTERACTION [None]
  - RHABDOMYOLYSIS [None]
  - RENAL FAILURE ACUTE [None]
  - INCONTINENCE [None]
  - COMA [None]
  - HYPERKALAEMIA [None]
  - BRADYCARDIA [None]
